FAERS Safety Report 6963894-1 (Version None)
Quarter: 2010Q3

REPORT INFORMATION
  Report Type: 
  Country: None (occurrence: None)
  Receive Date: 20100902
  Receipt Date: 20100827
  Transmission Date: 20110219
  Serious: Yes (Death, Hospitalization)
  Sender: FDA-Public Use
  Company Number: FR-MERCK-1008FRA00091

PATIENT
  Age: 92 Year
  Sex: Female
  Weight: 43 kg

DRUGS (1)
  1. JANUVIA [Suspect]
     Indication: TYPE 2 DIABETES MELLITUS
     Route: 048
     Dates: start: 20100315, end: 20100502

REACTIONS (3)
  - FALL [None]
  - FEMORAL NECK FRACTURE [None]
  - POST PROCEDURAL COMPLICATION [None]
